FAERS Safety Report 4559484-0 (Version None)
Quarter: 2005Q1

REPORT INFORMATION
  Report Type: 
  Country: None (occurrence: None)
  Receive Date: 20050119
  Receipt Date: 20050107
  Transmission Date: 20050727
  Serious: Yes (Hospitalization)
  Sender: FDA-Public Use
  Company Number: 002-0981-M0000261

PATIENT
  Age: 41 Year
  Sex: Male
  Weight: 96.5 kg

DRUGS (5)
  1. ATORVASTATIN (ATORVASTATIN) [Suspect]
     Indication: HYPERLIPIDAEMIA
     Dosage: SEE IMAGE
     Route: 048
     Dates: start: 19990707, end: 19990906
  2. ATORVASTATIN (ATORVASTATIN) [Suspect]
     Indication: HYPERLIPIDAEMIA
     Dosage: SEE IMAGE
     Route: 048
     Dates: start: 19990907
  3. ASPIRIN [Concomitant]
  4. METOPROLOL TARTRATE [Concomitant]
  5. NITROGLYCERN SPRAY (GLCERYL TRINITRATE) [Concomitant]

REACTIONS (4)
  - CHILLS [None]
  - DIARRHOEA [None]
  - DIVERTICULITIS [None]
  - HYPERHIDROSIS [None]
